FAERS Safety Report 7516420-2 (Version None)
Quarter: 2011Q2

REPORT INFORMATION
  Report Type: 
  Country: None (occurrence: None)
  Receive Date: 20110601
  Receipt Date: 20110525
  Transmission Date: 20111010
  Serious: Yes (Other)
  Sender: FDA-Public Use
  Company Number: US-PFIZER INC-2011114187

PATIENT
  Sex: Male

DRUGS (1)
  1. ADVIL LIQUI-GELS [Suspect]
     Dosage: TWO GELCAPS, FREQUENCY UNKNOWN

REACTIONS (2)
  - SLEEP APNOEA SYNDROME [None]
  - SOMNOLENCE [None]
